FAERS Safety Report 11120526 (Version 2)
Quarter: 2015Q2

REPORT INFORMATION
  Report Type: Report from Study
  Country: BR (occurrence: BR)
  Receive Date: 20150519
  Receipt Date: 20150519
  Transmission Date: 20150821
  Serious: Yes (Other)
  Sender: FDA-Public Use
  Company Number: BR-ROCHE-1511523

PATIENT
  Sex: Female
  Weight: 61.5 kg

DRUGS (12)
  1. ACTEMRA [Suspect]
     Active Substance: TOCILIZUMAB
     Indication: RHEUMATOID ARTHRITIS
     Route: 042
     Dates: start: 20141001
  2. DIPYRONE [Concomitant]
     Active Substance: DIPYRONE
  3. RIVOTRIL [Concomitant]
     Active Substance: CLONAZEPAM
  4. ACTEMRA [Suspect]
     Active Substance: TOCILIZUMAB
     Route: 042
     Dates: start: 20141101
  5. PARACETAMOL [Concomitant]
     Active Substance: ACETAMINOPHEN
  6. PURAN [Concomitant]
     Active Substance: LEVOTHYROXINE SODIUM
  7. CODEIN [Concomitant]
     Active Substance: CODEINE
  8. TRAMADOL [Concomitant]
     Active Substance: TRAMADOL
  9. PREDNISONE. [Concomitant]
     Active Substance: PREDNISONE
     Indication: PAIN
     Route: 065
  10. OMEPRAZOLE. [Concomitant]
     Active Substance: OMEPRAZOLE
  11. METHOTREXATE [Concomitant]
     Active Substance: METHOTREXATE
  12. NIMESULIDE [Concomitant]
     Active Substance: NIMESULIDE
     Indication: PAIN
     Route: 065

REACTIONS (10)
  - Musculoskeletal pain [Not Recovered/Not Resolved]
  - Pain in extremity [Unknown]
  - Swelling [Not Recovered/Not Resolved]
  - Knee deformity [Unknown]
  - Oropharyngeal pain [Unknown]
  - Deafness [Not Recovered/Not Resolved]
  - Rheumatic fever [Not Recovered/Not Resolved]
  - Urinary tract infection [Unknown]
  - Arthralgia [Not Recovered/Not Resolved]
  - Influenza [Not Recovered/Not Resolved]
